FAERS Safety Report 7085966-6 (Version None)
Quarter: 2010Q4

REPORT INFORMATION
  Report Type: 
  Country: None (occurrence: None)
  Receive Date: 20101008
  Receipt Date: 20100629
  Transmission Date: 20110411
  Serious: Yes (Life-Threatening)
  Sender: FDA-Public Use
  Company Number: 2010SP036806

PATIENT

DRUGS (2)
  1. TEMODAR [Suspect]
     Dosage: PO
     Route: 048
  2. AVASTIN [Concomitant]

REACTIONS (1)
  - PANCYTOPENIA [None]
